FAERS Safety Report 5905893-4 (Version None)
Quarter: 2008Q4

REPORT INFORMATION
  Report Type: 
  Country: None (occurrence: None)
  Receive Date: 20081001
  Receipt Date: 20081001
  Transmission Date: 20090506
  Serious: Yes (Life-Threatening, Hospitalization)
  Sender: FDA-Public Use
  Company Number: None

PATIENT
  Age: 63 Year
  Sex: Male
  Weight: 97.5234 kg

DRUGS (1)
  1. PROTONIX [Suspect]
     Indication: HAEMORRHAGE
     Dosage: 1 TABLET TWICE DAILY PO
     Route: 048
     Dates: start: 20080906, end: 20080921

REACTIONS (3)
  - BLOOD POTASSIUM DECREASED [None]
  - CARDIAC FAILURE CONGESTIVE [None]
  - RESPIRATORY DISORDER [None]
